FAERS Safety Report 21786534 (Version 2)
Quarter: 2023Q1

REPORT INFORMATION
  Report Type: Report from Study
  Country: DK (occurrence: None)
  Receive Date: 20221228
  Receipt Date: 20230104
  Transmission Date: 20230418
  Serious: Yes (Hospitalization)
  Sender: FDA-Public Use
  Company Number: DK-ROCHE-2078964

PATIENT
  Age: 52 Year
  Sex: Female

DRUGS (15)
  1. PIRFENIDONE [Suspect]
     Active Substance: PIRFENIDONE
     Indication: Bronchiolitis obliterans syndrome
     Dosage: 9 TABLETS PER DAY
     Route: 048
     Dates: start: 20171211
  2. AZITHROMYCIN [Concomitant]
     Active Substance: AZITHROMYCIN
  3. VALGANCICLOVIR [Concomitant]
     Active Substance: VALGANCICLOVIR
  4. PANTOPRAZOLE SODIUM [Concomitant]
     Active Substance: PANTOPRAZOLE SODIUM
  5. PRAVASTATIN [Concomitant]
     Active Substance: PRAVASTATIN
  6. BUMETANIDE [Concomitant]
     Active Substance: BUMETANIDE
  7. BENDROFLUMETHIAZID [Concomitant]
  8. POTASSIUM CHLORIDE [Concomitant]
     Active Substance: POTASSIUM CHLORIDE
  9. TACROLIMUS [Concomitant]
     Active Substance: TACROLIMUS
  10. PREDNISOLONE [Concomitant]
     Active Substance: PREDNISOLONE
  11. WARFARIN [Concomitant]
     Active Substance: WARFARIN
  12. CHOLESTYRAMINE [Concomitant]
     Active Substance: CHOLESTYRAMINE
  13. METOCLOPRAMIDE [Concomitant]
     Active Substance: METOCLOPRAMIDE
  14. SULFAMETHOXAZOLE\TRIMETHOPRIM [Concomitant]
     Active Substance: SULFAMETHOXAZOLE\TRIMETHOPRIM
  15. ACETAMINOPHEN [Concomitant]
     Active Substance: ACETAMINOPHEN

REACTIONS (6)
  - Dyspnoea [Unknown]
  - Oxygen saturation decreased [Unknown]
  - Dyspnoea [Not Recovered/Not Resolved]
  - Viral infection [Not Recovered/Not Resolved]
  - Pneumonia cytomegaloviral [Not Recovered/Not Resolved]
  - Pneumonia bacterial [Not Recovered/Not Resolved]

NARRATIVE: CASE EVENT DATE: 20180206
